FAERS Safety Report 10130297 (Version 1)
Quarter: 2014Q2

REPORT INFORMATION
  Report Type: Spontaneous
  Country: US (occurrence: None)
  Receive Date: 20140425
  Receipt Date: 20140425
  Transmission Date: 20141212
  Serious: Yes (Other)
  Sender: FDA-Public Use
  Company Number: None

PATIENT
  Age: 28 Year
  Sex: Female

DRUGS (2)
  1. KENALOG [Suspect]
     Indication: SINUS DISORDER
     Dosage: INTO THE MUSCLE
  2. KENALOG [Suspect]
     Indication: MULTIPLE ALLERGIES
     Dosage: INTO THE MUSCLE

REACTIONS (1)
  - Injection site reaction [None]
